FAERS Safety Report 9052596 (Version 7)
Quarter: 2013Q2

REPORT INFORMATION
  Report Type: Spontaneous
  Country: FR (occurrence: FR)
  Receive Date: 20130131
  Receipt Date: 20130614
  Transmission Date: 20140414
  Serious: Yes (Hospitalization, Other)
  Sender: FDA-Public Use
  Company Number: FR-VERTEX PHARMACEUTICALS INC.-2013-001092

PATIENT
  Age: 65 Year
  Sex: Female
  Weight: 64 kg

DRUGS (14)
  1. INCIVO [Suspect]
     Indication: CHRONIC HEPATITIS C
     Dosage: 2250 DAILY - UNIT NOT REPORTED
     Route: 048
     Dates: start: 20121106
  2. PEGINTERFERON ALFA 2A [Suspect]
     Indication: CHRONIC HEPATITIS C
     Dosage: DOSAGE FORM: INJECTION, 180 (UNIT NOT PROVIDED) WEEKLY
     Route: 058
     Dates: start: 20121106
  3. PEGINTERFERON ALFA 2A [Suspect]
     Dosage: DOSAGE FORM: INJECTION
     Route: 058
     Dates: start: 20130121
  4. RIBAVIRIN [Suspect]
     Indication: CHRONIC HEPATITIS C
     Dosage: DOSAGE FORM: TABLET
     Route: 048
     Dates: start: 20130104
  5. RIBAVIRIN [Suspect]
     Dosage: DOSAGE FORM: TABLET
     Route: 048
  6. RIBAVIRIN [Suspect]
     Dosage: DOSAGE FORM: TABLET, 1000 (UNIT NOT PROVIDED) DAILY
     Route: 048
     Dates: start: 20121107
  7. PROPRANOLOL [Concomitant]
     Indication: EXTRASYSTOLES
     Dosage: DOSAGE FORM: UNSPECIFIED
     Route: 048
     Dates: start: 20100203
  8. PARIET [Concomitant]
     Indication: OESOPHAGEAL SPASM
     Dosage: DOSAGE FORM: UNSPECIFIED
     Route: 048
     Dates: start: 20121106
  9. LEVOTHYROX [Concomitant]
     Indication: HYPOTHYROIDISM
     Dosage: DOSAGE FORM: UNSPECIFIED
     Route: 048
     Dates: start: 20100203
  10. LEVOTHYROX [Concomitant]
     Dosage: DOSAGE FORM: UNSPECIFIED
     Route: 048
     Dates: start: 20130118
  11. PARACETAMOL [Concomitant]
     Indication: PRODUCT USED FOR UNKNOWN INDICATION
     Route: 048
  12. AVLOCARDYL [Concomitant]
     Indication: EXTRASYSTOLES
     Dosage: DOSAGE FORM: UNSPECIFIED
     Route: 048
     Dates: start: 20100203
  13. DOLIPRANE [Concomitant]
     Indication: PAIN
     Dosage: UNK, PRN
     Route: 048
     Dates: start: 20121106
  14. SPECIAFOLDINE [Concomitant]
     Indication: ANAEMIA
     Dosage: DOSAGE FORM: UNSPECIFIED
     Route: 048
     Dates: start: 20121106

REACTIONS (6)
  - Decreased appetite [Unknown]
  - Fatigue [Recovered/Resolved]
  - Anaemia [Recovered/Resolved]
  - Pain [Unknown]
  - Escherichia urinary tract infection [Unknown]
  - Pathogen resistance [Unknown]
